FAERS Safety Report 4347564-4 (Version None)
Quarter: 2004Q1

REPORT INFORMATION
  Report Type: 
  Country: None (occurrence: None)
  Receive Date: 20040325
  Receipt Date: 20040106
  Transmission Date: 20041129
  Serious: No
  Sender: FDA-Public Use
  Company Number: USA030844192

PATIENT
  Age: 85 Year
  Sex: Female

DRUGS (10)
  1. FORTEO [Suspect]
     Indication: OSTEOPOROSIS
     Dosage: 20 UG/DAY
     Dates: start: 20030626
  2. COUMADIN (WAFARIN SODIUM) [Concomitant]
  3. EVISTA [Concomitant]
  4. SYNTHROID (LEVOTHYROXINE SODUIM) [Concomitant]
  5. ACTONEL [Concomitant]
  6. ATENOLOL [Concomitant]
  7. ASPIRIN [Concomitant]
  8. SOTALOL HCL [Concomitant]
  9. AVALIDE [Concomitant]
  10. CALCIUM [Concomitant]

REACTIONS (2)
  - PROTHROMBIN TIME ABNORMAL [None]
  - PROTHROMBIN TIME PROLONGED [None]
